FAERS Safety Report 6152505-3 (Version None)
Quarter: 2009Q2

REPORT INFORMATION
  Report Type: 
  Country: None (occurrence: None)
  Receive Date: 20090409
  Receipt Date: 20090402
  Transmission Date: 20091009
  Serious: Yes (Hospitalization, Other)
  Sender: FDA-Public Use
  Company Number: 1000005616

PATIENT
  Age: 84 Year
  Sex: Female

DRUGS (11)
  1. NAMENDA [Suspect]
     Indication: DEMENTIA ALZHEIMER'S TYPE
     Dosage: 5 MG (5 MG, 1 IN 1 D), ORAL
     Route: 048
     Dates: start: 20030101, end: 20030101
  2. NAMENDA [Suspect]
     Indication: DEMENTIA ALZHEIMER'S TYPE
     Dosage: 5 MG (5 MG, 1 IN 1 D), ORAL
     Route: 048
     Dates: start: 20030101, end: 20030101
  3. NAMENDA [Suspect]
     Indication: DEMENTIA ALZHEIMER'S TYPE
     Dosage: 5 MG (5 MG, 1 IN 1 D), ORAL
     Route: 048
     Dates: start: 20030101, end: 20090323
  4. AMANTADINE HCL [Suspect]
     Dosage: 20 MG (10 MG, 2 IN 3 D)
     Dates: start: 20090125, end: 20090310
  5. LISINOPRIL [Concomitant]
  6. ADVAIR HFA [Concomitant]
  7. OMEPRAZOLE [Concomitant]
  8. ISOSORBIDE [Concomitant]
  9. FOLIC ACID [Concomitant]
  10. PAROXETINE HCL [Concomitant]
  11. METOPROLOL SUCCINATE [Concomitant]

REACTIONS (14)
  - ANAEMIA [None]
  - APHASIA [None]
  - CLOSTRIDIAL INFECTION [None]
  - CONDITION AGGRAVATED [None]
  - DECUBITUS ULCER [None]
  - DROOLING [None]
  - DRUG PRESCRIBING ERROR [None]
  - DYSPHAGIA [None]
  - GENERAL PHYSICAL HEALTH DETERIORATION [None]
  - MOVEMENT DISORDER [None]
  - MYOCARDIAL INFARCTION [None]
  - PNEUMONIA [None]
  - URINARY TRACT INFECTION [None]
  - WRONG DRUG ADMINISTERED [None]
